FAERS Safety Report 9113575 (Version 1)
Quarter: 2013Q1

REPORT INFORMATION
  Report Type: Spontaneous
  Country: JP (occurrence: JP)
  Receive Date: 20130208
  Receipt Date: 20130208
  Transmission Date: 20140127
  Serious: Yes (Other)
  Sender: FDA-Public Use
  Company Number: JP-ASTRAZENECA-2013SE07601

PATIENT
  Sex: Male

DRUGS (1)
  1. NEXIUM [Suspect]
     Route: 048
     Dates: start: 201211

REACTIONS (3)
  - Myocarditis [Unknown]
  - Electrocardiogram ST segment elevation [Unknown]
  - Aspartate aminotransferase increased [Unknown]
